FAERS Safety Report 25625596 (Version 1)
Quarter: 2025Q3

REPORT INFORMATION
  Report Type: Report from Study
  Country: US (occurrence: US)
  Receive Date: 20250731
  Receipt Date: 20250731
  Transmission Date: 20251021
  Serious: Yes (Other)
  Sender: ABBVIE
  Company Number: US-ABBVIE-6394614

PATIENT
  Age: 38 Year
  Sex: Female

DRUGS (1)
  1. RINVOQ [Suspect]
     Active Substance: UPADACITINIB
     Indication: Dermatitis atopic
     Route: 048
     Dates: start: 20240429

REACTIONS (3)
  - Hysterectomy [Recovered/Resolved]
  - Uterine leiomyoma [Recovered/Resolved]
  - Endometriosis [Recovered/Resolved]

NARRATIVE: CASE EVENT DATE: 20250722
